FAERS Safety Report 14415402 (Version 3)
Quarter: 2018Q1

REPORT INFORMATION
  Report Type: Report from Study
  Country: MX (occurrence: MX)
  Receive Date: 20180121
  Receipt Date: 20180226
  Transmission Date: 20180509
  Serious: Yes (Other)
  Sender: FDA-Public Use
  Company Number: PHHY2018MX006642

PATIENT
  Age: 5 Year
  Sex: Male

DRUGS (3)
  1. RISPERDAL [Concomitant]
     Active Substance: RISPERIDONE
     Indication: ATTENTION DEFICIT/HYPERACTIVITY DISORDER
     Dosage: 12 DF (1 MG/ML), 7 DROPS IN THE MORNING AND 5 DROPS IN THE EVENING
     Route: 065
  2. RITALIN LA [Suspect]
     Active Substance: METHYLPHENIDATE HYDROCHLORIDE
     Dosage: 0.25 DF (20 MG), QD (IN THE MORNING)
     Route: 048
  3. RITALIN LA [Suspect]
     Active Substance: METHYLPHENIDATE HYDROCHLORIDE
     Indication: AUTISM SPECTRUM DISORDER
     Dosage: 0.5 DF (20 MG), QD, (IN THE MORNING)
     Route: 048
     Dates: start: 20171216, end: 20180104

REACTIONS (10)
  - Product use in unapproved indication [Not Recovered/Not Resolved]
  - Weight decreased [Not Recovered/Not Resolved]
  - Salivary hypersecretion [Recovering/Resolving]
  - Feeling abnormal [Not Recovered/Not Resolved]
  - Disturbance in attention [Recovering/Resolving]
  - Aphasia [Recovering/Resolving]
  - Drug administered to patient of inappropriate age [Unknown]
  - General physical health deterioration [Not Recovered/Not Resolved]
  - Drug prescribing error [Not Recovered/Not Resolved]
  - Wrong technique in product usage process [Not Recovered/Not Resolved]

NARRATIVE: CASE EVENT DATE: 20171216
